FAERS Safety Report 5249839-3 (Version None)
Quarter: 2007Q1

REPORT INFORMATION
  Report Type: 
  Country: None (occurrence: None)
  Receive Date: 20070228
  Receipt Date: 20070226
  Transmission Date: 20070707
  Serious: Yes (Other)
  Sender: FDA-Public Use
  Company Number: US-GLAXOSMITHKLINE-A0640991A

PATIENT
  Age: 33 Year
  Sex: Male

DRUGS (2)
  1. SEREVENT [Suspect]
     Indication: ASTHMA
     Dosage: 1PUFF TWICE PER DAY
     Route: 055
     Dates: start: 20060101, end: 20070212
  2. NO CONCURRENT MEDICATION [Concomitant]

REACTIONS (7)
  - AMNESIA [None]
  - CHEST PAIN [None]
  - CONFUSIONAL STATE [None]
  - CYANOSIS [None]
  - LOSS OF CONSCIOUSNESS [None]
  - RESPIRATORY ARREST [None]
  - SYNCOPE [None]
